FAERS Safety Report 19391641 (Version 1)
Quarter: 2021Q2

REPORT INFORMATION
  Report Type: Spontaneous
  Country: KW (occurrence: KW)
  Receive Date: 20210608
  Receipt Date: 20210608
  Transmission Date: 20210717
  Serious: Yes (Death)
  Sender: FDA-Public Use
  Company Number: KW-PFIZER INC-2021640130

PATIENT
  Age: 54 Year
  Sex: Female

DRUGS (1)
  1. IBRANCE [Suspect]
     Active Substance: PALBOCICLIB
     Dosage: 125 MG, CYCLIC (ONCE DAILY FOR 3 WEEKS)
     Route: 048
     Dates: start: 20201109

REACTIONS (1)
  - Death [Fatal]

NARRATIVE: CASE EVENT DATE: 20210328
